FAERS Safety Report 8692959 (Version 2)
Quarter: 2013Q3

REPORT INFORMATION
  Report Type: Spontaneous
  Country: US (occurrence: US)
  Receive Date: 20120730
  Receipt Date: 20130707
  Transmission Date: 20140515
  Serious: No
  Sender: FDA-Public Use
  Company Number: US-ALLERGAN-1201499US

PATIENT
  Age: 87 Year
  Sex: Female

DRUGS (2)
  1. LUMIGAN? 0.01% [Suspect]
     Indication: GLAUCOMA
     Dosage: 2 GTT, BID
     Route: 047
     Dates: start: 20120102, end: 20120112
  2. MECLIZINE                          /00072801/ [Concomitant]
     Indication: VERTIGO
     Dosage: UNK UNK, PRN
     Route: 048

REACTIONS (5)
  - Vitreous floaters [Unknown]
  - Vision blurred [Not Recovered/Not Resolved]
  - Eye pain [Recovered/Resolved]
  - Eye irritation [Unknown]
  - Drug ineffective [Unknown]
